FAERS Safety Report 6244324-4 (Version None)
Quarter: 2009Q2

REPORT INFORMATION
  Report Type: 
  Country: None (occurrence: None)
  Receive Date: 20090623
  Receipt Date: 20090623
  Transmission Date: 20091009
  Serious: Yes (Disabling, Other)
  Sender: FDA-Public Use
  Company Number: None

PATIENT
  Sex: Female
  Weight: 53.5244 kg

DRUGS (3)
  1. BUPROPION HYDROCHLORIDE [Suspect]
     Indication: ANXIETY
     Dosage: 150 MG ONCE DAILY ORAL
     Route: 048
     Dates: start: 20090101
  2. BUPROPION HYDROCHLORIDE [Suspect]
     Indication: DEPRESSION
     Dosage: 150 MG ONCE DAILY ORAL
     Route: 048
     Dates: start: 20090101
  3. XANAX [Concomitant]

REACTIONS (5)
  - ABDOMINAL DISTENSION [None]
  - CONSTIPATION [None]
  - GASTROINTESTINAL PAIN [None]
  - MUSCLE SPASMS [None]
  - UNEVALUABLE EVENT [None]
